FAERS Safety Report 6996973-3 (Version None)
Quarter: 2010Q3

REPORT INFORMATION
  Report Type: 
  Country: None (occurrence: None)
  Receive Date: 20100918
  Receipt Date: 20090826
  Transmission Date: 20110219
  Serious: No
  Sender: FDA-Public Use
  Company Number: US-WYE-H10741109

PATIENT
  Age: 16 Year
  Sex: Male
  Weight: 61.29 kg

DRUGS (4)
  1. EFFEXOR XR [Suspect]
     Indication: DEPRESSION
     Route: 048
     Dates: start: 20080101, end: 20090401
  2. EFFEXOR XR [Suspect]
     Dosage: ^TAPER OFF BY 1 CAPSULE EVERY 3 WEEKS^
     Route: 048
     Dates: start: 20090401, end: 20090601
  3. EFFEXOR XR [Suspect]
     Dosage: ^RESTARTED WITH 1 CAPSULE DAILY^
     Route: 048
     Dates: start: 20090601, end: 20090704
  4. EFFEXOR XR [Suspect]
     Dosage: ^CUT CAPSULE IN HALF FOR A DAILY DOSE^, PER MD ORDER
     Route: 048
     Dates: start: 20090705

REACTIONS (5)
  - DIZZINESS [None]
  - DRUG WITHDRAWAL SYNDROME [None]
  - NAUSEA [None]
  - PRESYNCOPE [None]
  - VERTIGO [None]
